FAERS Safety Report 6219290-8 (Version None)
Quarter: 2009Q2

REPORT INFORMATION
  Report Type: 
  Country: None (occurrence: None)
  Receive Date: 20090609
  Receipt Date: 20090602
  Transmission Date: 20091009
  Serious: Yes (Other)
  Sender: FDA-Public Use
  Company Number: SE-AMGEN-QUU349560

PATIENT
  Sex: Male

DRUGS (1)
  1. ARANESP [Suspect]
     Indication: DIALYSIS
     Dates: start: 20070101, end: 20090501

REACTIONS (1)
  - HAEMOGLOBIN DECREASED [None]
